FAERS Safety Report 18563244 (Version 1)
Quarter: 2020Q4

REPORT INFORMATION
  Report Type: Spontaneous
  Country: GB (occurrence: GB)
  Receive Date: 20201201
  Receipt Date: 20201201
  Transmission Date: 20210114
  Serious: Yes (Other)
  Sender: FDA-Public Use
  Company Number: GB-SA-2020SA344354

PATIENT

DRUGS (6)
  1. ZEROBASE [Concomitant]
     Active Substance: MINERAL OIL\PARAFFIN
  2. SERETIDE [Concomitant]
     Active Substance: FLUTICASONE PROPIONATE\SALMETEROL XINAFOATE
     Dosage: UNK
  3. CETOMACROGOL 1000 [Concomitant]
     Active Substance: COSMETICS
     Dosage: UNK
  4. LORATADINE. [Concomitant]
     Active Substance: LORATADINE
  5. SALBUTAMOL [Concomitant]
     Active Substance: ALBUTEROL
     Dosage: UNK
  6. DUPILUMAB [Suspect]
     Active Substance: DUPILUMAB
     Indication: ECZEMA
     Dosage: 200 MG
     Route: 058
     Dates: start: 20201001, end: 20201110

REACTIONS (1)
  - Eosinophilia [Recovering/Resolving]

NARRATIVE: CASE EVENT DATE: 20201109
